FAERS Safety Report 6370922-3 (Version None)
Quarter: 2009Q3

REPORT INFORMATION
  Report Type: 
  Country: None (occurrence: None)
  Receive Date: 20090923
  Receipt Date: 20070525
  Transmission Date: 20100115
  Serious: Yes (Hospitalization)
  Sender: FDA-Public Use
  Company Number: US-ASTRAZENECA-2006UW23638

PATIENT
  Age: 11946 Day
  Sex: Female
  Weight: 78 kg

DRUGS (83)
  1. SEROQUEL [Suspect]
     Indication: BIPOLAR DISORDER
     Dosage: 25 MG-600 MG
     Route: 048
     Dates: start: 20011015
  2. ABILIFY [Concomitant]
     Dates: start: 20050307
  3. ZYPREXA [Concomitant]
  4. LUNESTA [Concomitant]
  5. PERCOCET [Concomitant]
  6. REMERON [Concomitant]
  7. EFFEXOR XR [Concomitant]
  8. SONATA [Concomitant]
  9. HUMULIN R [Concomitant]
  10. OXYCODONE HCL AND ACETAMINOPHEN [Concomitant]
  11. FOLIC ACID [Concomitant]
  12. DEPO-PROVERA [Concomitant]
  13. AMBIEN [Concomitant]
  14. ROXICET [Concomitant]
  15. BENADRYL [Concomitant]
  16. BACTRIM [Concomitant]
  17. DEMEROL [Concomitant]
  18. PREVACID [Concomitant]
  19. LEVAQUIN [Concomitant]
  20. HYDROMORPHONE [Concomitant]
  21. CLOTRIMAZOLE [Concomitant]
  22. GLUCOTROL XL [Concomitant]
  23. TRILEPTAL [Concomitant]
  24. CYTOMEL [Concomitant]
  25. ALBUTEROL [Concomitant]
  26. FUROSEMIDE [Concomitant]
  27. FERROUS SULFATE TAB [Concomitant]
  28. IBUPROFEN [Concomitant]
  29. VIOXX [Concomitant]
  30. CEPHALEXIN [Concomitant]
  31. BIAXIN [Concomitant]
  32. GUAIFENEX [Concomitant]
  33. ACTIQ [Concomitant]
  34. BENZONATATE [Concomitant]
  35. PROMETHAZINE [Concomitant]
  36. ESKALITH CR [Concomitant]
  37. AMITRIPTYLINE [Concomitant]
  38. CYCLOBENZAPRINE [Concomitant]
  39. PROPOXYPHENE HCL CAP [Concomitant]
  40. HYDROXYZINE [Concomitant]
  41. BUTALBITAL [Concomitant]
  42. DICLOFENAC SODIUM [Concomitant]
  43. NAPROXEN [Concomitant]
  44. PENICILLIN [Concomitant]
  45. PENTAZOCINE/NALOXONE [Concomitant]
  46. NITROFURANTOIN [Concomitant]
  47. OXYCONTIN [Concomitant]
  48. PROZAC [Concomitant]
  49. ZITHROMAX [Concomitant]
  50. ISONIAZID [Concomitant]
  51. PYRIDOXINE [Concomitant]
  52. DEPAKOTE [Concomitant]
  53. SULINDAC [Concomitant]
  54. MORPHINE SULFATE INJ [Concomitant]
  55. HALOPERIDOL [Concomitant]
  56. BENZTROPINE MESYLATE [Concomitant]
  57. HEPARIN [Concomitant]
  58. ENOXAPARIN [Concomitant]
  59. LOVENOX [Concomitant]
  60. MIRALAX [Concomitant]
  61. PHENERGAN [Concomitant]
  62. AVANDIA [Concomitant]
  63. TYLENOL (CAPLET) [Concomitant]
  64. DILAUDID [Concomitant]
  65. TORADOL [Concomitant]
  66. ZOFRAN ODT [Concomitant]
  67. NEURONTIN [Concomitant]
  68. HYDREA [Concomitant]
  69. DURAGESIC-100 [Concomitant]
  70. LEXAPRO [Concomitant]
  71. AVINZA [Concomitant]
  72. METHYLPREDNISOLONE 4MG TAB [Concomitant]
  73. TRAMADOL HCL [Concomitant]
  74. POTASSIUM CHLORIDE [Concomitant]
  75. PROTONIX [Concomitant]
  76. ULTRACET [Concomitant]
  77. MAALOX [Concomitant]
  78. SIMETHICONE [Concomitant]
  79. SENOKOT [Concomitant]
  80. LORTAB [Concomitant]
  81. FRAGMIN [Concomitant]
  82. VANCOMYCIN [Concomitant]
  83. LORAZEPAM [Concomitant]

REACTIONS (2)
  - DIABETES MELLITUS [None]
  - DIABETES MELLITUS INADEQUATE CONTROL [None]
